FAERS Safety Report 7883377-4 (Version None)
Quarter: 2011Q4

REPORT INFORMATION
  Report Type: 
  Country: None (occurrence: None)
  Receive Date: 20111102
  Receipt Date: 20111102
  Transmission Date: 20120403
  Serious: Yes (Other)
  Sender: FDA-Public Use
  Company Number: None

PATIENT
  Age: 25 Year
  Sex: Male
  Weight: 72.574 kg

DRUGS (1)
  1. HYDROXYCHLOROQUINE SULFATE [Suspect]
     Indication: MALARIA PROPHYLAXIS
     Dosage: 200MG
     Route: 048
     Dates: start: 20101216, end: 20110210

REACTIONS (3)
  - MANIA [None]
  - PSYCHOTIC DISORDER [None]
  - PRODUCT LABEL ISSUE [None]
